FAERS Safety Report 7720830-8 (Version None)
Quarter: 2011Q3

REPORT INFORMATION
  Report Type: 
  Country: None (occurrence: None)
  Receive Date: 20110831
  Receipt Date: 20110826
  Transmission Date: 20111222
  Serious: Yes (Other)
  Sender: FDA-Public Use
  Company Number: FR-BRISTOL-MYERS SQUIBB COMPANY-16011314

PATIENT
  Age: 67 Year
  Sex: Female

DRUGS (3)
  1. PLAVIX [Concomitant]
  2. IRBESARTAN [Suspect]
     Route: 048
  3. JANUVIA [Concomitant]

REACTIONS (2)
  - UVEITIS [None]
  - ANGIOTENSIN CONVERTING ENZYME INCREASED [None]
